FAERS Safety Report 6316571-4 (Version None)
Quarter: 2009Q3

REPORT INFORMATION
  Report Type: 
  Country: None (occurrence: None)
  Receive Date: 20090820
  Receipt Date: 20090812
  Transmission Date: 20100115
  Serious: Yes (Other)
  Sender: FDA-Public Use
  Company Number: PHHY2009CA34053

PATIENT
  Age: 40 Year
  Sex: Female

DRUGS (1)
  1. DIOVAN [Suspect]
     Indication: HYPERTENSION
     Dosage: 80 MG ONCE DAILY

REACTIONS (4)
  - AMNESIA [None]
  - COUGH [None]
  - INSOMNIA [None]
  - MYALGIA [None]
